FAERS Safety Report 23701486 (Version 1)
Quarter: 2024Q2

REPORT INFORMATION
  Report Type: Spontaneous
  Country: FR (occurrence: FR)
  Receive Date: 20240403
  Receipt Date: 20240403
  Transmission Date: 20240716
  Serious: Yes (Hospitalization, Other)
  Sender: FDA-Public Use
  Company Number: FR-GlaxoSmithKline-B0287484A

PATIENT

DRUGS (3)
  1. LAMICTAL [Suspect]
     Active Substance: LAMOTRIGINE
     Indication: Epilepsy
     Dosage: UNK
     Route: 048
     Dates: start: 20020604, end: 20020620
  2. PHENYTOIN [Suspect]
     Active Substance: PHENYTOIN
     Indication: Epilepsy
     Dosage: UNK
     Route: 048
     Dates: end: 20020620
  3. PROPACETAMOL HYDROCHLORIDE [Concomitant]
     Active Substance: PROPACETAMOL HYDROCHLORIDE
     Indication: Product used for unknown indication
     Dosage: UNK
     Route: 065

REACTIONS (35)
  - Drug hypersensitivity [Recovered/Resolved]
  - Lupus-like syndrome [Recovered/Resolved]
  - Haemophagocytic lymphohistiocytosis [Recovered/Resolved]
  - Pyrexia [Recovered/Resolved]
  - Pruritus [Recovered/Resolved]
  - Rash [Recovered/Resolved]
  - Mouth ulceration [Recovered/Resolved]
  - Conjunctivitis [Recovered/Resolved]
  - Meningitis aseptic [Recovered/Resolved]
  - Myalgia [Recovered/Resolved]
  - Headache [Recovered/Resolved]
  - Vomiting [Recovered/Resolved]
  - Confusional state [Recovered/Resolved]
  - Phonophobia [Recovered/Resolved]
  - C-reactive protein increased [Recovered/Resolved]
  - CSF protein increased [Recovered/Resolved]
  - CSF glucose abnormal [Recovered/Resolved]
  - Hepatitis [Recovered/Resolved]
  - Hepatic cytolysis [Recovered/Resolved]
  - Cholestasis [Recovered/Resolved]
  - Blood lactate dehydrogenase increased [Recovered/Resolved]
  - Transaminases increased [Recovered/Resolved]
  - Blood creatine phosphokinase increased [Recovered/Resolved]
  - Blood creatine phosphokinase MB increased [Recovered/Resolved]
  - Disseminated intravascular coagulation [Recovered/Resolved]
  - Thrombocytopenia [Recovered/Resolved]
  - Blood fibrinogen decreased [Recovered/Resolved]
  - Prothrombin level decreased [Recovered/Resolved]
  - Activated partial thromboplastin time prolonged [Recovered/Resolved]
  - Serum ferritin increased [Recovered/Resolved]
  - Polyarthritis [Recovered/Resolved]
  - Hepatosplenomegaly [Recovered/Resolved]
  - Antinuclear antibody positive [Recovered/Resolved]
  - Photophobia [Recovered/Resolved]
  - Meningism [Recovered/Resolved]

NARRATIVE: CASE EVENT DATE: 20020604
